FAERS Safety Report 22111883 (Version 6)
Quarter: 2023Q2

REPORT INFORMATION
  Report Type: Spontaneous
  Country: US (occurrence: US)
  Receive Date: 20230318
  Receipt Date: 20230515
  Transmission Date: 20230721
  Serious: No
  Sender: FDA-Public Use
  Company Number: US-002147023-NVSC2023US062835

PATIENT
  Sex: Female

DRUGS (1)
  1. MEKINIST [Suspect]
     Active Substance: TRAMETINIB DIMETHYL SULFOXIDE
     Indication: Neoplasm
     Dosage: 2 MG, QD
     Route: 048
     Dates: start: 202302

REACTIONS (5)
  - Acne [Unknown]
  - Fluid retention [Unknown]
  - Rash [Unknown]
  - Hypertension [Unknown]
  - Peripheral swelling [Unknown]
